FAERS Safety Report 25489625 (Version 5)
Quarter: 2025Q3

REPORT INFORMATION
  Report Type: Spontaneous
  Country: US (occurrence: US)
  Receive Date: 20250627
  Receipt Date: 20250910
  Transmission Date: 20251020
  Serious: Yes (Hospitalization)
  Sender: VERTEX
  Company Number: US-VERTEX PHARMACEUTICALS-2025-010160

PATIENT
  Age: 82 Year
  Sex: Male

DRUGS (4)
  1. JOURNAVX [Suspect]
     Active Substance: SUZETRIGINE
     Indication: Pain
     Dosage: 1 TABLET (50 MG), BID, EVERY 12 HOURS PRN
     Route: 048
     Dates: start: 20250530, end: 20250606
  2. CELEBREX [Suspect]
     Active Substance: CELECOXIB
     Indication: Post procedural swelling
     Route: 065
     Dates: start: 20250530, end: 20250606
  3. IRBESARTAN [Concomitant]
     Active Substance: IRBESARTAN
     Indication: Hypertension
  4. HYDROCHLOROTHIAZIDE [Concomitant]
     Active Substance: HYDROCHLOROTHIAZIDE
     Indication: Hypertension

REACTIONS (2)
  - Acute kidney injury [Not Recovered/Not Resolved]
  - Urinary retention [Recovered/Resolved]

NARRATIVE: CASE EVENT DATE: 20250606
